FAERS Safety Report 4489594-8 (Version None)
Quarter: 2004Q4

REPORT INFORMATION
  Report Type: 
  Country: None (occurrence: None)
  Receive Date: 20041101
  Receipt Date: 20040414
  Transmission Date: 20050328
  Serious: Yes (Hospitalization)
  Sender: FDA-Public Use
  Company Number: PL-BRISTOL-MYERS SQUIBB COMPANY-12562153

PATIENT
  Age: 59 Year
  Sex: Male

DRUGS (3)
  1. METFORMIN HCL [Suspect]
     Indication: METABOLIC SYNDROME
     Dosage: 06-MAR-2004 TO 09-MAR-2004, RESTARTED 13-APR-2004
     Route: 048
     Dates: start: 20040306
  2. FENOFIBRATE [Suspect]
     Indication: METABOLIC SYNDROME
     Dosage: 06-MAR-2004 TO 09-MAR-2004, RESTARTED 13-APR-2004
     Route: 048
     Dates: start: 20040306
  3. PRESTARIUM [Concomitant]
     Indication: HYPERTENSION
     Dates: start: 20020101, end: 20040309

REACTIONS (1)
  - GASTRITIS [None]
